FAERS Safety Report 22306376 (Version 1)
Quarter: 2023Q2

REPORT INFORMATION
  Report Type: Spontaneous
  Country: US (occurrence: US)
  Receive Date: 20230511
  Receipt Date: 20230511
  Transmission Date: 20230721
  Serious: Yes (Life-Threatening, Hospitalization, Other)
  Sender: FDA-Public Use
  Company Number: US-JNJFOC-20230519744

PATIENT
  Age: 33 Year
  Sex: Male

DRUGS (4)
  1. VELETRI [Suspect]
     Active Substance: EPOPROSTENOL
     Indication: Product used for unknown indication
     Route: 055
     Dates: start: 202211
  2. TYVASO [Suspect]
     Active Substance: TREPROSTINIL
     Indication: Pulmonary arterial hypertension
     Route: 065
     Dates: start: 20221128, end: 20221128
  3. TYVASO [Suspect]
     Active Substance: TREPROSTINIL
     Route: 065
  4. ILOPROST [Concomitant]
     Active Substance: ILOPROST
     Dosage: ILOPROST AT DOSE OF 5 UG, 9 TIMES A DAY
     Route: 055

REACTIONS (5)
  - Cardio-respiratory arrest [Recovering/Resolving]
  - Bronchospasm [Recovering/Resolving]
  - Airway peak pressure increased [Recovering/Resolving]
  - Product dose omission issue [Unknown]
  - Off label use [Unknown]
